FAERS Safety Report 8049502-X (Version None)
Quarter: 2012Q1

REPORT INFORMATION
  Report Type: 
  Country: None (occurrence: None)
  Receive Date: 20120117
  Receipt Date: 20120116
  Transmission Date: 20120608
  Serious: Yes (Other)
  Sender: FDA-Public Use
  Company Number: US-ABBOTT-11P-163-0841251-00

PATIENT
  Age: 49 Year
  Sex: Male

DRUGS (6)
  1. REYATAZ [Concomitant]
     Indication: HIV INFECTION
     Route: 048
     Dates: start: 20060101
  2. NORVIR [Suspect]
     Indication: HIV INFECTION
     Route: 048
     Dates: start: 20060101
  3. LEXAPRO [Suspect]
     Indication: ANXIETY
  4. LEXAPRO [Suspect]
     Indication: DEPRESSION
     Route: 048
     Dates: start: 20110427, end: 20110429
  5. TRUVADA [Concomitant]
     Indication: HIV INFECTION
     Route: 048
     Dates: start: 20060101
  6. ALPRAZOLAM [Concomitant]
     Indication: ANXIETY
     Dosage: TWICE A DAY, AS NEEDED
     Route: 048
     Dates: start: 20010101

REACTIONS (2)
  - DRUG INTERACTION [None]
  - TRANSIENT ISCHAEMIC ATTACK [None]
